FAERS Safety Report 6866414-5 (Version None)
Quarter: 2010Q3

REPORT INFORMATION
  Report Type: 
  Country: None (occurrence: None)
  Receive Date: 20100722
  Receipt Date: 20100716
  Transmission Date: 20110219
  Serious: Yes (Hospitalization)
  Sender: FDA-Public Use
  Company Number: FR-BRISTOL-MYERS SQUIBB COMPANY-15197809

PATIENT
  Age: 84 Year
  Sex: Male

DRUGS (11)
  1. DAFALGAN CODEINE TABS [Suspect]
     Indication: PAIN
     Dates: end: 20100607
  2. COAPROVEL [Suspect]
     Dates: end: 20100607
  3. IXPRIM [Suspect]
     Indication: PAIN
     Dosage: 1 DF: 37.5MG/325 MG
     Dates: start: 20100604, end: 20100607
  4. ZOPICLONE [Suspect]
     Indication: INSOMNIA
     Dates: end: 20100607
  5. XANAX [Suspect]
     Indication: ANXIETY
     Dates: end: 20100607
  6. VIRLIX [Suspect]
     Dates: end: 20100607
  7. LOPERAMIDE HCL [Suspect]
     Dates: end: 20100607
  8. ESCITALOPRAM OXALATE [Suspect]
     Dates: end: 20100607
  9. XATRAL [Suspect]
     Dates: end: 20100607
  10. GLUCOR [Concomitant]
  11. PREVISCAN [Concomitant]

REACTIONS (6)
  - AGITATION [None]
  - FALL [None]
  - HYPOTENSION [None]
  - RENAL FAILURE ACUTE [None]
  - RESPIRATORY TRACT INFLAMMATION [None]
  - SOMNOLENCE [None]
